FAERS Safety Report 18055057 (Version 1)
Quarter: 2020Q3

REPORT INFORMATION
  Report Type: Other
  Country: CA (occurrence: CA)
  Receive Date: 20200722
  Receipt Date: 20200722
  Transmission Date: 20201103
  Serious: Yes (Death, Other)
  Sender: FDA-Public Use
  Company Number: CA-PFIZER INC-2020277281

PATIENT
  Age: 51 Year
  Sex: Female

DRUGS (3)
  1. IMMUNE GLOBULIN (IMMUNOGLOBULINS NOS) [Suspect]
     Active Substance: IMMUNE GLOBULIN NOS
     Indication: TRANSPLANT REJECTION
     Dosage: UNK
     Route: 042
  2. RITUXIMAB. [Suspect]
     Active Substance: RITUXIMAB
     Indication: TRANSPLANT REJECTION
     Dosage: UNK
  3. METHYLPREDNISOLONE. [Suspect]
     Active Substance: METHYLPREDNISOLONE
     Indication: TRANSPLANT REJECTION
     Dosage: UNK

REACTIONS (6)
  - Ventricular tachycardia [Fatal]
  - Coronary artery disease [Fatal]
  - Cardiac cirrhosis [Fatal]
  - Drug ineffective [Fatal]
  - Intentional product use issue [Fatal]
  - Cardiac arrest [Fatal]
